FAERS Safety Report 22294512 (Version 2)
Quarter: 2024Q2

REPORT INFORMATION
  Report Type: Spontaneous
  Country: US (occurrence: US)
  Receive Date: 20230508
  Receipt Date: 20240415
  Transmission Date: 20240715
  Serious: No
  Sender: FDA-Public Use
  Company Number: US-ASTPRD-AER-2022-016779

PATIENT

DRUGS (4)
  1. LEXISCAN [Suspect]
     Active Substance: REGADENOSON
     Indication: Product used for unknown indication
     Dosage: UNK UNK, UNKNOWN FREQ. (THROUGH A CENTRAL LINE (SUCH AS A PICC OR A JUGULAR))
     Route: 050
  2. LEXISCAN [Suspect]
     Active Substance: REGADENOSON
     Indication: Product used for unknown indication
     Dosage: UNK UNK, UNKNOWN FREQ. (THROUGH A CENTRAL LINE (SUCH AS A PICC OR A JUGULAR))
     Route: 050
  3. LEXISCAN [Suspect]
     Active Substance: REGADENOSON
     Indication: Product used for unknown indication
     Dosage: UNK UNK, UNKNOWN FREQ. (THROUGH A CENTRAL LINE (SUCH AS A PICC OR A JUGULAR))
     Route: 050
  4. LEXISCAN [Suspect]
     Active Substance: REGADENOSON
     Indication: Product used for unknown indication
     Dosage: UNK UNK, UNKNOWN FREQ. (THROUGH A CENTRAL LINE (SUCH AS A PICC OR A JUGULAR))
     Route: 050

REACTIONS (1)
  - Wrong technique in product usage process [Unknown]
